FAERS Safety Report 7018144-7 (Version None)
Quarter: 2010Q3

REPORT INFORMATION
  Report Type: 
  Country: None (occurrence: None)
  Receive Date: 20100928
  Receipt Date: 20100916
  Transmission Date: 20110219
  Serious: Yes (Other)
  Sender: FDA-Public Use
  Company Number: US-ROCHE-727956

PATIENT
  Sex: Female

DRUGS (2)
  1. PEGASYS [Suspect]
     Indication: HEPATITIS C
     Dosage: THERAPY SUSPENDED
     Route: 065
     Dates: start: 20100824, end: 20100831
  2. RIBAVIRIN [Suspect]
     Indication: HEPATITIS C
     Dosage: THERAPY SUSPENDED
     Route: 065
     Dates: start: 20100824, end: 20100831

REACTIONS (4)
  - BACK DISORDER [None]
  - HYPOAESTHESIA [None]
  - INTERVERTEBRAL DISC PROTRUSION [None]
  - PARAESTHESIA [None]
